FAERS Safety Report 16421593 (Version 1)
Quarter: 2019Q2

REPORT INFORMATION
  Report Type: Spontaneous
  Country: US (occurrence: US)
  Receive Date: 20190612
  Receipt Date: 20190612
  Transmission Date: 20190711
  Serious: Yes (Hospitalization)
  Sender: FDA-Public Use
  Company Number: US-ANIPHARMA-2019-US-008753

PATIENT
  Age: 88 Year
  Sex: Female

DRUGS (6)
  1. LORAZEPAM. [Concomitant]
     Active Substance: LORAZEPAM
  2. VALPROIC ACID (NON-SPECIFIC) [Suspect]
     Active Substance: VALPROIC ACID
     Indication: PRODUCT USED FOR UNKNOWN INDICATION
  3. SERTRALINE [Suspect]
     Active Substance: SERTRALINE HYDROCHLORIDE
     Indication: PRODUCT USED FOR UNKNOWN INDICATION
  4. CLONAZEPAM. [Concomitant]
     Active Substance: CLONAZEPAM
  5. TRAMADOL. [Suspect]
     Active Substance: TRAMADOL
     Indication: PRODUCT USED FOR UNKNOWN INDICATION
  6. TRAZODONE [Suspect]
     Active Substance: TRAZODONE HYDROCHLORIDE
     Indication: PRODUCT USED FOR UNKNOWN INDICATION

REACTIONS (1)
  - Serotonin syndrome [Recovered/Resolved]
